FAERS Safety Report 21037715 (Version 1)
Quarter: 2022Q3

REPORT INFORMATION
  Report Type: Spontaneous
  Country: JP (occurrence: JP)
  Receive Date: 20220704
  Receipt Date: 20220704
  Transmission Date: 20221027
  Serious: Yes (Other)
  Sender: FDA-Public Use
  Company Number: JP-SUN PHARMACEUTICAL INDUSTRIES LTD-2022RR-342127

PATIENT
  Age: 88 Year
  Sex: Female
  Weight: 41 kg

DRUGS (8)
  1. EPINEPHRINE [Suspect]
     Active Substance: EPINEPHRINE
     Indication: Hypotension
     Dosage: 0.05 MILLIGRAM, TWO BOLUSES
     Route: 040
  2. EPINEPHRINE [Suspect]
     Active Substance: EPINEPHRINE
     Indication: Bronchospasm
     Dosage: 0.1 MILLIGRAM, TWICE
     Route: 040
  3. EPINEPHRINE [Suspect]
     Active Substance: EPINEPHRINE
     Dosage: 0.1 MICROGRAM/KILOGRAM/MIN
     Route: 040
  4. SUGAMMADEX [Suspect]
     Active Substance: SUGAMMADEX
     Indication: Postoperative care
     Dosage: 100 MILLIGRAM
     Route: 065
  5. NOREPINEPHRINE [Suspect]
     Active Substance: NOREPINEPHRINE
     Indication: Hypotension
     Dosage: 0.3 MICROGRAM/KILOGRAM/MIN
     Route: 065
  6. NOREPINEPHRINE [Suspect]
     Active Substance: NOREPINEPHRINE
     Indication: Bronchospasm
  7. GLUCAGON [Concomitant]
     Active Substance: GLUCAGON
     Indication: Hypotension
     Dosage: 1 MILLIGRAM
     Route: 042
  8. GLUCAGON [Concomitant]
     Active Substance: GLUCAGON
     Indication: Bronchospasm

REACTIONS (3)
  - Anaphylactic shock [Recovered/Resolved]
  - Rash erythematous [Unknown]
  - Drug ineffective [Unknown]
